FAERS Safety Report 19403396 (Version 1)
Quarter: 2021Q2

REPORT INFORMATION
  Report Type: Report from Study
  Country: US (occurrence: US)
  Receive Date: 20210610
  Receipt Date: 20210610
  Transmission Date: 20210717
  Serious: Yes (Other)
  Sender: FDA-Public Use
  Company Number: US-GILEAD-2021-0535201

PATIENT
  Sex: Female

DRUGS (1)
  1. SACITUZUMAB GOVITECAN. [Suspect]
     Active Substance: SACITUZUMAB GOVITECAN
     Indication: BREAST CANCER METASTATIC
     Dosage: 811 MG, ON DAY 1 AND DAY 8 OF A 21?DAY CYCLE
     Route: 042
     Dates: start: 20200818, end: 20210504

REACTIONS (3)
  - Liver disorder [Not Recovered/Not Resolved]
  - Metastases to liver [Unknown]
  - Disease progression [Unknown]
